FAERS Safety Report 14112211 (Version 1)
Quarter: 2017Q4

REPORT INFORMATION
  Report Type: Spontaneous
  Country: IT (occurrence: IT)
  Receive Date: 20171020
  Receipt Date: 20171020
  Transmission Date: 20180321
  Serious: Yes (Death)
  Sender: FDA-Public Use
  Company Number: IT-DSJP-DSE-2017-147471

PATIENT

DRUGS (1)
  1. LIXIANA [Suspect]
     Active Substance: EDOXABAN TOSYLATE
     Indication: ATRIAL FIBRILLATION
     Dosage: 60 MG, QD
     Route: 048

REACTIONS (3)
  - Cardio-respiratory arrest [Fatal]
  - Haemoptysis [Fatal]
  - Dyspnoea [Fatal]

NARRATIVE: CASE EVENT DATE: 20171008
